FAERS Safety Report 25472069 (Version 1)
Quarter: 2025Q2

REPORT INFORMATION
  Report Type: Spontaneous
  Country: NL (occurrence: NL)
  Receive Date: 20250624
  Receipt Date: 20250624
  Transmission Date: 20250717
  Serious: Yes (Other)
  Sender: AUROBINDO
  Company Number: NL-LRB-01064388

PATIENT
  Age: 57 Year
  Sex: Female
  Weight: 65 kg

DRUGS (1)
  1. TOPIRAMATE [Suspect]
     Active Substance: TOPIRAMATE
     Indication: Sleep disorder
     Dosage: 25 MILLIGRAM, EVERY HOUR
     Route: 048
     Dates: start: 20250210, end: 20250301

REACTIONS (4)
  - Suicidal ideation [Recovered/Resolved]
  - Panic attack [Recovered/Resolved]
  - Nausea [Recovered/Resolved]
  - Speech disorder [Recovered/Resolved]
